FAERS Safety Report 7832933-8 (Version None)
Quarter: 2011Q4

REPORT INFORMATION
  Report Type: 
  Country: None (occurrence: None)
  Receive Date: 20111019
  Receipt Date: 20111005
  Transmission Date: 20120403
  Serious: Yes (Hospitalization)
  Sender: FDA-Public Use
  Company Number: 2011AL0000080

PATIENT
  Age: 75 Year
  Sex: Female
  Weight: 47.1741 kg

DRUGS (12)
  1. OXYCODONE HCL [Concomitant]
  2. WARFARIN SODIUM [Concomitant]
  3. CALCIUM CARBONATE [Concomitant]
  4. FISH OIL [Concomitant]
  5. FLOCONAZOLE [Concomitant]
  6. FOLIC ACID [Concomitant]
  7. HYDROCORTISONE [Concomitant]
  8. PRALATREXATE (PRALATREXATE) [Suspect]
     Indication: OVARIAN CANCER
     Dosage: 20 MG/M**2; IV
     Route: 042
     Dates: start: 20110419, end: 20110915
  9. DEXAMETHASONE [Concomitant]
  10. ESOMEPRAZOLE SODIUM [Concomitant]
  11. VICODIN [Concomitant]
  12. MAGNESIUM [Concomitant]

REACTIONS (6)
  - OESOPHAGEAL CANDIDIASIS [None]
  - DEHYDRATION [None]
  - BLOOD LACTATE DEHYDROGENASE INCREASED [None]
  - WHITE BLOOD CELL COUNT DECREASED [None]
  - BLOOD GLUCOSE INCREASED [None]
  - MALNUTRITION [None]
